FAERS Safety Report 8595646-3 (Version None)
Quarter: 2012Q3

REPORT INFORMATION
  Report Type: 
  Country: None (occurrence: None)
  Receive Date: 20120815
  Receipt Date: 20120112
  Transmission Date: 20120928
  Serious: No
  Sender: FDA-Public Use
  Company Number: US-FOUGERA-2012FO000156

PATIENT
  Age: 61 Year
  Sex: Male
  Weight: 125.19 kg

DRUGS (2)
  1. NITRO-BID [Suspect]
     Indication: RECTAL FISSURE
     Route: 061
     Dates: start: 20110601
  2. PROPRANOLOL [Concomitant]
     Indication: PRODUCT USED FOR UNKNOWN INDICATION
     Dates: start: 20050101, end: 20110601

REACTIONS (5)
  - EPISTAXIS [None]
  - DIZZINESS [None]
  - OFF LABEL USE [None]
  - BLOOD PRESSURE FLUCTUATION [None]
  - DRUG DISPENSING ERROR [None]
